FAERS Safety Report 24702051 (Version 1)
Quarter: 2024Q4

REPORT INFORMATION
  Report Type: Spontaneous
  Country: GB (occurrence: GB)
  Receive Date: 20241205
  Receipt Date: 20241205
  Transmission Date: 20250115
  Serious: Yes (Life-Threatening, Other)
  Sender: HIKMA
  Company Number: GB-HIKMA PHARMACEUTICALS-GB-H14001-24-11255

PATIENT
  Sex: Male

DRUGS (1)
  1. ROCURONIUM [Suspect]
     Active Substance: ROCURONIUM BROMIDE
     Indication: Product used for unknown indication
     Dosage: UNK
     Route: 065

REACTIONS (3)
  - Anaphylactic reaction [Recovering/Resolving]
  - Hypotension [Unknown]
  - Hypoxia [Unknown]

NARRATIVE: CASE EVENT DATE: 20241127
